FAERS Safety Report 5278549-1 (Version None)
Quarter: 2007Q1

REPORT INFORMATION
  Report Type: 
  Country: None (occurrence: None)
  Receive Date: 20070322
  Receipt Date: 20070312
  Transmission Date: 20070707
  Serious: Yes (Hospitalization)
  Sender: FDA-Public Use
  Company Number: 2004BI001546

PATIENT
  Age: 59 Year
  Sex: Female

DRUGS (5)
  1. AVONEX [Suspect]
     Indication: MULTIPLE SCLEROSIS
     Dosage: SEE IMAGE
     Route: 030
     Dates: start: 20030203, end: 20031101
  2. AVONEX [Suspect]
     Indication: MULTIPLE SCLEROSIS
     Dosage: SEE IMAGE
     Route: 030
     Dates: start: 20031101, end: 20041203
  3. AVONEX [Suspect]
     Indication: MULTIPLE SCLEROSIS
  4. TOPROL-XL [Concomitant]
  5. FOSAMAX [Concomitant]

REACTIONS (2)
  - OVARIAN CANCER [None]
  - OVARIAN CYST [None]
